FAERS Safety Report 18304310 (Version 4)
Quarter: 2021Q2

REPORT INFORMATION
  Report Type: Report from Study
  Country: None (occurrence: IL)
  Receive Date: 20200924
  Receipt Date: 20210615
  Transmission Date: 20210717
  Serious: Yes (Hospitalization)
  Sender: FDA-Public Use
  Company Number: IL-ABBVIE-20K-082-3381771-00

PATIENT
  Age: 71 Year
  Sex: Male
  Weight: 80 kg

DRUGS (36)
  1. VENETOCLAX. [Suspect]
     Active Substance: VENETOCLAX
     Dosage: DOSE INCREASE ACCORDING TO VENETOCLAX DOSE TITRATION SCHEME
     Route: 048
     Dates: start: 20200405, end: 20200411
  2. VENETOCLAX. [Suspect]
     Active Substance: VENETOCLAX
     Route: 048
     Dates: start: 20201220
  3. NEXIUM [Concomitant]
     Active Substance: ESOMEPRAZOLE MAGNESIUM
     Indication: PROPHYLAXIS AGAINST GASTROINTESTINAL ULCER
     Dates: start: 20200107
  4. METHYLPREDNISOLONE. [Concomitant]
     Active Substance: METHYLPREDNISOLONE
     Dates: start: 20200323, end: 20200323
  5. PARACETAMOL [Concomitant]
     Active Substance: ACETAMINOPHEN
     Indication: PREMEDICATION
     Dates: start: 20200309, end: 20200309
  6. VENETOCLAX. [Suspect]
     Active Substance: VENETOCLAX
     Dosage: MODIFICATION DUE TO COVID?19
     Route: 048
     Dates: start: 20201111, end: 20201128
  7. ATACAND PLUS [Concomitant]
     Active Substance: CANDESARTAN CILEXETIL\HYDROCHLOROTHIAZIDE
     Indication: HYPERTENSION
     Dates: start: 20200107
  8. CARTIA [Concomitant]
     Indication: ISCHAEMIC HEART DISEASE PROPHYLAXIS
     Dates: start: 20200107
  9. CIPRALEX [Concomitant]
     Active Substance: ESCITALOPRAM OXALATE
     Indication: PROPHYLAXIS
     Dates: start: 20200107
  10. NORVASC [Concomitant]
     Active Substance: AMLODIPINE BESYLATE
     Indication: HYPERTENSION
     Dates: start: 20200401
  11. PARACETAMOL [Concomitant]
     Active Substance: ACETAMINOPHEN
     Dates: start: 20200412, end: 20200412
  12. COVID?19 VACCINE [Concomitant]
     Dates: start: 2021, end: 2021
  13. VENETOCLAX. [Suspect]
     Active Substance: VENETOCLAX
     Dosage: DOSE INCREASE ACCORDING TO VENETOCLAX DOSE TITRATION SCHEME. INTERRUPTION DUE TO COVID?19
     Route: 048
     Dates: start: 20200426, end: 20200917
  14. OBINUTUZUMAB. [Suspect]
     Active Substance: OBINUTUZUMAB
     Indication: CD20 ANTIGEN POSITIVE
     Route: 042
     Dates: start: 20200309, end: 20200309
  15. PARACETAMOL [Concomitant]
     Active Substance: ACETAMINOPHEN
     Dates: start: 20200316, end: 20200316
  16. COVID?19 VACCINE [Concomitant]
     Indication: COVID-19 IMMUNISATION
     Dates: start: 2020, end: 2020
  17. VENETOCLAX. [Suspect]
     Active Substance: VENETOCLAX
     Route: 048
     Dates: start: 20201206, end: 202012
  18. OBINUTUZUMAB. [Suspect]
     Active Substance: OBINUTUZUMAB
     Route: 042
     Dates: start: 20200412, end: 20200412
  19. ALLORIL [Concomitant]
     Active Substance: ALLOPURINOL
     Indication: PROPHYLAXIS
     Dates: start: 20200327
  20. PROMETHAZINE HCL [Concomitant]
     Active Substance: PROMETHAZINE HYDROCHLORIDE
     Indication: ADJUVANT THERAPY
     Dates: start: 20200309, end: 20200309
  21. PROMETHAZINE HCL [Concomitant]
     Active Substance: PROMETHAZINE HYDROCHLORIDE
     Dates: start: 20200316, end: 20200316
  22. VENETOCLAX. [Suspect]
     Active Substance: VENETOCLAX
     Indication: CHRONIC LYMPHOCYTIC LEUKAEMIA
     Dosage: DOSE INCREASE ACCORDING TO VENETOCLAX DOSE TITRATION SCHEME
     Route: 048
     Dates: start: 20200330, end: 20200404
  23. VENETOCLAX. [Suspect]
     Active Substance: VENETOCLAX
     Dosage: MODIFICATION DUE TO COVID?19
     Route: 048
     Dates: start: 20201129, end: 20201205
  24. OBINUTUZUMAB. [Suspect]
     Active Substance: OBINUTUZUMAB
     Indication: CHRONIC LYMPHOCYTIC LEUKAEMIA
     Route: 042
     Dates: start: 20200316, end: 20200316
  25. OBINUTUZUMAB. [Suspect]
     Active Substance: OBINUTUZUMAB
     Route: 042
     Dates: start: 20200323, end: 20200323
  26. METHYLPREDNISOLONE. [Concomitant]
     Active Substance: METHYLPREDNISOLONE
     Dates: start: 20200316, end: 20200316
  27. LORASTINE [Concomitant]
     Active Substance: LORATADINE
     Indication: ADJUVANT THERAPY
     Dates: start: 20200412, end: 20200412
  28. VENETOCLAX. [Suspect]
     Active Substance: VENETOCLAX
     Dosage: DOSE INCREASE ACCORDING TO VENETOCLAX DOSE TITRATION SCHEME
     Route: 048
     Dates: start: 20200412, end: 20200418
  29. VENETOCLAX. [Suspect]
     Active Substance: VENETOCLAX
     Dosage: DOSE INCREASE ACCORDING TO VENETOCLAX DOSE TITRATION SCHEME
     Route: 048
     Dates: start: 20200419, end: 20200425
  30. CARDILOC [Concomitant]
     Active Substance: BISOPROLOL FUMARATE
     Indication: HYPERTENSION
  31. CARDILOC [Concomitant]
     Active Substance: BISOPROLOL FUMARATE
     Indication: CORONARY ARTERY DISEASE
  32. LIPITOR [Concomitant]
     Active Substance: ATORVASTATIN CALCIUM
     Indication: BLOOD CHOLESTEROL DECREASED
     Dates: start: 20200107
  33. MAGNESIUM CITRATE. [Concomitant]
     Active Substance: MAGNESIUM CITRATE
     Indication: BLOOD MAGNESIUM ABNORMAL
     Dates: start: 20200401
  34. METHYLPREDNISOLONE. [Concomitant]
     Active Substance: METHYLPREDNISOLONE
     Dates: start: 20200412, end: 20200412
  35. METHYLPREDNISOLONE. [Concomitant]
     Active Substance: METHYLPREDNISOLONE
     Indication: ADJUVANT THERAPY
     Dates: start: 20200309, end: 20200309
  36. PARACETAMOL [Concomitant]
     Active Substance: ACETAMINOPHEN
     Dates: start: 20200323, end: 20200323

REACTIONS (5)
  - Febrile neutropenia [Recovered/Resolved]
  - Neutrophil count decreased [Recovered/Resolved]
  - Neutropenia [Recovered/Resolved]
  - SARS-CoV-2 test positive [Recovered/Resolved]
  - Neutropenia [Recovered/Resolved]

NARRATIVE: CASE EVENT DATE: 20200412
